FAERS Safety Report 18773907 (Version 2)
Quarter: 2021Q1

REPORT INFORMATION
  Report Type: Report from Study
  Country: None (occurrence: US)
  Receive Date: 20210122
  Receipt Date: 20210126
  Transmission Date: 20210419
  Serious: Yes (Hospitalization, Other)
  Sender: FDA-Public Use
  Company Number: US-ABBVIE-21K-163-3739206-00

PATIENT
  Sex: Male

DRUGS (8)
  1. VENCLEXTA [Suspect]
     Active Substance: VENETOCLAX
     Indication: ACUTE MYELOID LEUKAEMIA
     Dosage: FOR ONE WEEK
     Route: 048
     Dates: start: 20190408, end: 20190621
  2. VENCLEXTA [Suspect]
     Active Substance: VENETOCLAX
     Dosage: FOR SEVEN DAYS
     Route: 048
     Dates: start: 202004, end: 202004
  3. VENCLEXTA [Suspect]
     Active Substance: VENETOCLAX
     Dosage: DOSE DECREASED TO 200 MILLIGRAM
     Route: 048
  4. VENCLEXTA [Suspect]
     Active Substance: VENETOCLAX
     Route: 048
     Dates: start: 201906, end: 20191002
  5. VENCLEXTA [Suspect]
     Active Substance: VENETOCLAX
     Dosage: TWO WEEKS ON TWO WEEKS OFF
     Route: 048
     Dates: start: 201910, end: 20200402
  6. TIBSOVO [Concomitant]
     Active Substance: IVOSIDENIB
     Indication: ACUTE MYELOID LEUKAEMIA
     Route: 048
  7. VENCLEXTA [Suspect]
     Active Substance: VENETOCLAX
     Dosage: FOR SEVEN DAYS
     Route: 048
     Dates: start: 202004, end: 202004
  8. VENCLEXTA [Suspect]
     Active Substance: VENETOCLAX
     Dosage: FOR SEVEN DAYS AND THEREAFTER
     Route: 048
     Dates: start: 202004

REACTIONS (9)
  - COVID-19 [Unknown]
  - Dehydration [Recovering/Resolving]
  - Incontinence [Unknown]
  - Blood pressure abnormal [Recovering/Resolving]
  - Pulmonary oedema [Unknown]
  - Mobility decreased [Unknown]
  - Unevaluable event [Unknown]
  - Loss of consciousness [Recovering/Resolving]
  - Bedridden [Unknown]
